FAERS Safety Report 26176086 (Version 1)
Quarter: 2025Q4

REPORT INFORMATION
  Report Type: Spontaneous
  Country: GB (occurrence: GB)
  Receive Date: 20251218
  Receipt Date: 20251218
  Transmission Date: 20260118
  Serious: Yes (Death, Other)
  Sender: ELI LILLY AND COMPANY
  Company Number: None

PATIENT
  Age: 56 Year
  Sex: Male
  Weight: 105 kg

DRUGS (2)
  1. MOUNJARO [Suspect]
     Active Substance: TIRZEPATIDE
     Indication: Product used for unknown indication
     Dosage: 2.5MG WEEKLY
     Route: 065
     Dates: start: 20250207
  2. MOUNJARO [Suspect]
     Active Substance: TIRZEPATIDE
     Indication: Product used for unknown indication
     Dosage: 2.5MG WEEKLY
     Route: 065
     Dates: start: 20250207

REACTIONS (2)
  - Completed suicide [Fatal]
  - Major depression [Unknown]
